FAERS Safety Report 7881530 (Version 3)
Quarter: 2014Q1

REPORT INFORMATION
  Report Type: Spontaneous
  Country: US (occurrence: US)
  Receive Date: 20110401
  Receipt Date: 20140116
  Transmission Date: 20141002
  Serious: No
  Sender: FDA-Public Use
  Company Number: US-PFIZER INC-2011069493

PATIENT
  Sex: Female

DRUGS (2)
  1. VERAPAMIL HCL [Suspect]
     Dosage: 120 MG, UNK
  2. CALAN SR [Suspect]
     Dosage: 120 MG, UNK

REACTIONS (3)
  - Allergy to chemicals [Unknown]
  - Food allergy [Unknown]
  - Irritable bowel syndrome [Unknown]
